FAERS Safety Report 8181895 (Version 11)
Quarter: 2019Q4

REPORT INFORMATION
  Report Type: Spontaneous
  Country: US (occurrence: US)
  Receive Date: 20111014
  Receipt Date: 20191025
  Transmission Date: 20200122
  Serious: Yes (Hospitalization, Disabling, Other)
  Sender: FDA-Public Use
  Company Number: US-009507513-1110USA01562

PATIENT
  Sex: Female
  Weight: 72.58 kg

DRUGS (5)
  1. SYNTHROID [Concomitant]
     Active Substance: LEVOTHYROXINE SODIUM
     Indication: HYPOTHYROIDISM
  2. VITAMIN D (UNSPECIFIED) [Concomitant]
     Active Substance: VITAMIN D NOS
     Indication: OSTEOPENIA
     Dosage: 1 CAPSULE TWICE A DAY
  3. FOSAMAX [Suspect]
     Active Substance: ALENDRONATE SODIUM
     Indication: BONE LOSS
     Dosage: 70 MG, QW
     Route: 048
     Dates: start: 200005
  4. FOSAMAX [Suspect]
     Active Substance: ALENDRONATE SODIUM
     Indication: OSTEOPOROSIS
  5. CALCIUM (UNSPECIFIED) [Concomitant]
     Active Substance: CALCIUM
     Indication: OSTEOPENIA

REACTIONS (41)
  - Depression [Unknown]
  - Vitamin D deficiency [Unknown]
  - Joint injury [Unknown]
  - Foot fracture [Recovered/Resolved]
  - Arthralgia [Recovered/Resolved]
  - Gastrooesophageal reflux disease [Unknown]
  - Arthralgia [Recovered/Resolved]
  - Intervertebral disc degeneration [Unknown]
  - Fall [Unknown]
  - Rheumatoid arthritis [Unknown]
  - Foot deformity [Unknown]
  - Foot fracture [Recovered/Resolved]
  - Tendonitis [Unknown]
  - Fall [Unknown]
  - Muscle spasms [Unknown]
  - Fall [Unknown]
  - Restless legs syndrome [Unknown]
  - Fracture nonunion [Not Recovered/Not Resolved]
  - Impaired healing [Unknown]
  - Anxiety [Unknown]
  - Musculoskeletal disorder [Unknown]
  - Bursitis [Unknown]
  - Seasonal allergy [Unknown]
  - Tooth disorder [Unknown]
  - Product administration error [Unknown]
  - Tooth disorder [Unknown]
  - Pain in extremity [Unknown]
  - Fracture nonunion [Unknown]
  - Femur fracture [Recovered/Resolved]
  - Adverse event [Unknown]
  - Bone contusion [Unknown]
  - Tooth abscess [Unknown]
  - Hypercholesterolaemia [Unknown]
  - Hypertension [Unknown]
  - Exostosis [Unknown]
  - Foot fracture [Recovered/Resolved]
  - Ulcer [Unknown]
  - Tooth disorder [Unknown]
  - Rheumatic disorder [Unknown]
  - Nausea [Unknown]
  - Muscle spasms [Unknown]

NARRATIVE: CASE EVENT DATE: 2000
